FAERS Safety Report 8980128 (Version 2)
Quarter: 2013Q1

REPORT INFORMATION
  Report Type: Spontaneous
  Country: DE (occurrence: DE)
  Receive Date: 20121221
  Receipt Date: 20130314
  Transmission Date: 20140127
  Serious: Yes (Death, Life-Threatening, Other)
  Sender: FDA-Public Use
  Company Number: DE-ROCHE-1173061

PATIENT
  Age: 68 Year
  Sex: Male
  Weight: 81 kg

DRUGS (8)
  1. AVASTIN [Suspect]
     Indication: NON-SMALL CELL LUNG CANCER
     Route: 042
     Dates: start: 20120924, end: 20120924
  2. AVASTIN [Suspect]
     Route: 042
  3. PANTOZOL [Concomitant]
     Route: 048
     Dates: end: 20121017
  4. ARCOXIA [Concomitant]
     Indication: PAIN
     Route: 048
     Dates: start: 201208, end: 20121017
  5. AMITRIPTYLINE [Concomitant]
     Indication: PAIN
     Route: 048
     Dates: start: 201208, end: 20121017
  6. MOVICOL [Concomitant]
     Indication: PAIN
     Route: 048
     Dates: start: 201208, end: 20121017
  7. CARBOPLATIN [Concomitant]
     Indication: NON-SMALL CELL LUNG CANCER
     Route: 042
     Dates: start: 20120924, end: 20120924
  8. GEMZAR [Concomitant]
     Indication: NON-SMALL CELL LUNG CANCER
     Route: 042

REACTIONS (5)
  - Cough [Unknown]
  - Pulmonary embolism [Fatal]
  - Deep vein thrombosis [Fatal]
  - Pneumonia [Fatal]
  - Bronchial carcinoma [Fatal]
